FAERS Safety Report 21433690 (Version 1)
Quarter: 2022Q4

REPORT INFORMATION
  Report Type: Spontaneous
  Country: BR (occurrence: BR)
  Receive Date: 20221010
  Receipt Date: 20221010
  Transmission Date: 20230112
  Serious: Yes (Other)
  Sender: FDA-Public Use
  Company Number: BR-BRISTOL-MYERS SQUIBB COMPANY-2022-074478

PATIENT
  Age: 31 Year
  Sex: Female
  Weight: 65 kg

DRUGS (13)
  1. PENTOXIFYLLINE [Suspect]
     Active Substance: PENTOXIFYLLINE
     Indication: Type 2 lepra reaction
     Route: 048
     Dates: start: 2018, end: 2020
  2. THALIDOMIDE [Suspect]
     Active Substance: THALIDOMIDE
     Indication: Type 2 lepra reaction
     Route: 048
     Dates: start: 2018
  3. THALIDOMIDE [Suspect]
     Active Substance: THALIDOMIDE
     Dosage: ENL TREATMENT AFTER ANTI TNF ALPHA THERAPY
     Route: 065
  4. THALIDOMIDE [Suspect]
     Active Substance: THALIDOMIDE
     Route: 048
  5. PREDNISONE [Suspect]
     Active Substance: PREDNISONE
     Indication: Type 2 lepra reaction
     Route: 065
  6. PREDNISONE [Suspect]
     Active Substance: PREDNISONE
     Route: 048
     Dates: start: 2017, end: 2019
  7. PREDNISONE [Suspect]
     Active Substance: PREDNISONE
     Dosage: 60-70MG/DAY IN THE YEAR PRIOR TO BIOLOGIC THERAPY (2020)
     Route: 048
     Dates: start: 2019
  8. PREDNISONE [Suspect]
     Active Substance: PREDNISONE
     Route: 048
     Dates: end: 202207
  9. METHOTREXATE [Suspect]
     Active Substance: METHOTREXATE
     Indication: Type 2 lepra reaction
     Dosage: REACHING 25 MG/WEEK
     Route: 048
     Dates: start: 2018
  10. METHOTREXATE [Suspect]
     Active Substance: METHOTREXATE
     Route: 048
  11. METHYLPREDNISOLONE [Suspect]
     Active Substance: METHYLPREDNISOLONE
     Indication: Type 2 lepra reaction
     Dosage: PULSE THERAPY
     Route: 042
  12. VITAMIN D [Concomitant]
     Active Substance: VITAMIN D NOS
     Indication: Weight control
  13. CALCIUM [Concomitant]
     Active Substance: CALCIUM
     Indication: Weight control

REACTIONS (4)
  - Cataract [Unknown]
  - Therapy non-responder [Unknown]
  - Osteoporosis [Unknown]
  - Insulin resistance [Unknown]

NARRATIVE: CASE EVENT DATE: 20190101
